FAERS Safety Report 6723379-4 (Version None)
Quarter: 2010Q2

REPORT INFORMATION
  Report Type: 
  Country: None (occurrence: None)
  Receive Date: 20100513
  Receipt Date: 20090706
  Transmission Date: 20101027
  Serious: No
  Sender: FDA-Public Use
  Company Number: US-ABBOTT-09P-163-0584146-00

PATIENT
  Sex: Male
  Weight: 65.83 kg

DRUGS (2)
  1. GENGRAF [Suspect]
     Indication: RENAL TRANSPLANT
     Route: 048
     Dates: start: 20020101
  2. CELLCEPT [Concomitant]
     Indication: RENAL TRANSPLANT
     Route: 048

REACTIONS (2)
  - EXPIRED DRUG ADMINISTERED [None]
  - RENAL PAIN [None]
